FAERS Safety Report 16338986 (Version 1)
Quarter: 2019Q2

REPORT INFORMATION
  Report Type: Other
  Country: CA (occurrence: CA)
  Receive Date: 20190521
  Receipt Date: 20190521
  Transmission Date: 20190711
  Serious: Yes (Other)
  Sender: FDA-Public Use
  Company Number: CA-BECTON DICKINSON-2019BDN00211

PATIENT
  Age: 42 Year
  Sex: Female

DRUGS (23)
  1. LEFLUNOMIDE. [Suspect]
     Active Substance: LEFLUNOMIDE
  2. DESOGESTREL AND ETHINYL ESTRADIOL [Concomitant]
     Active Substance: DESOGESTREL\ETHINYL ESTRADIOL
  3. CHLORHEXIDINE [Suspect]
     Active Substance: CHLORHEXIDINE
  4. CIMZIA [Suspect]
     Active Substance: CERTOLIZUMAB PEGOL
     Indication: RHEUMATOID ARTHRITIS
     Dosage: 400 MG
     Route: 058
  5. PANTOPRAZOLE [Concomitant]
     Active Substance: PANTOPRAZOLE
  6. ACETAMINOPHEN. [Suspect]
     Active Substance: ACETAMINOPHEN
  7. METHOTREXATE. [Suspect]
     Active Substance: METHOTREXATE
  8. ARAVA [Concomitant]
     Active Substance: LEFLUNOMIDE
  9. ASCORBIC ACID (VITAMIN C) [Concomitant]
     Active Substance: ASCORBIC ACID
  10. IBUPROFEN. [Concomitant]
     Active Substance: IBUPROFEN
  11. ACTEMRA [Suspect]
     Active Substance: TOCILIZUMAB
  12. OXYCODONE TEREPHTHALATE [Suspect]
     Active Substance: OXYCODONE TEREPHTHALATE
  13. ERGOCALCIFEROL. [Concomitant]
     Active Substance: ERGOCALCIFEROL
  14. ZOPICLONE [Concomitant]
     Active Substance: ZOPICLONE
  15. HYDROXYCHLOROQUINE [Concomitant]
     Active Substance: HYDROXYCHLOROQUINE
  16. TYLENOL [Concomitant]
     Active Substance: ACETAMINOPHEN
  17. VENTOLIN [Concomitant]
     Active Substance: ALBUTEROL SULFATE
  18. ORENCIA [Suspect]
     Active Substance: ABATACEPT
  19. OXYCODONE [Suspect]
     Active Substance: OXYCODONE
  20. SIMPONI [Suspect]
     Active Substance: GOLIMUMAB
     Route: 058
  21. PREDNISONE. [Concomitant]
     Active Substance: PREDNISONE
  22. REACTINE (CETIRIZINE HYDROCHLORIDE) [Concomitant]
     Active Substance: CETIRIZINE HYDROCHLORIDE
  23. ENBREL [Suspect]
     Active Substance: ETANERCEPT
     Indication: RHEUMATOID ARTHRITIS

REACTIONS (20)
  - Night sweats [Unknown]
  - Pain [Unknown]
  - Diarrhoea [Unknown]
  - Insomnia [Unknown]
  - Ear pain [Unknown]
  - Abdominal pain upper [Unknown]
  - Urticaria [Unknown]
  - Body temperature increased [Unknown]
  - Headache [Unknown]
  - Joint swelling [Unknown]
  - Pruritus generalised [Unknown]
  - Rash [Unknown]
  - Peripheral swelling [Unknown]
  - Respiratory disorder [Unknown]
  - Asthenia [Unknown]
  - Back pain [Unknown]
  - Lower respiratory tract infection [Unknown]
  - Sinusitis [Unknown]
  - Muscle spasticity [Unknown]
  - Vomiting [Unknown]
